FAERS Safety Report 9365470 (Version 1)
Quarter: 2013Q2

REPORT INFORMATION
  Report Type: Spontaneous
  Country: US (occurrence: None)
  Receive Date: 20130624
  Receipt Date: 20130624
  Transmission Date: 20140414
  Serious: Yes (Other)
  Sender: FDA-Public Use
  Company Number: None

PATIENT
  Age: 40 Year
  Sex: Male
  Weight: 83.92 kg

DRUGS (2)
  1. ESCITALOPRAM [Suspect]
     Route: 048
  2. ESCITALOPRAM 20 MG MYLAN [Suspect]
     Route: 048

REACTIONS (6)
  - Drug withdrawal syndrome [None]
  - Headache [None]
  - Diarrhoea [None]
  - Irritability [None]
  - Feeling abnormal [None]
  - Product substitution issue [None]
